FAERS Safety Report 22180176 (Version 1)
Quarter: 2023Q2

REPORT INFORMATION
  Report Type: Report from Study
  Country: FI (occurrence: FI)
  Receive Date: 20230406
  Receipt Date: 20230406
  Transmission Date: 20230721
  Serious: Yes (Other)
  Sender: FDA-Public Use
  Company Number: FI-SUN PHARMACEUTICAL INDUSTRIES LTD-2023R1-383560

PATIENT
  Age: 9 Decade
  Sex: Female

DRUGS (2)
  1. ROSUVASTATIN [Interacting]
     Active Substance: ROSUVASTATIN
     Indication: Angina unstable
     Dosage: UNK
     Route: 065
  2. TICAGRELOR [Interacting]
     Active Substance: TICAGRELOR
     Indication: Angina unstable
     Dosage: UNK
     Route: 065

REACTIONS (2)
  - Rhabdomyolysis [Recovered/Resolved]
  - Drug interaction [Unknown]
